FAERS Safety Report 25665245 (Version 1)
Quarter: 2025Q3

REPORT INFORMATION
  Report Type: Spontaneous
  Country: US (occurrence: US)
  Receive Date: 20250811
  Receipt Date: 20250811
  Transmission Date: 20251021
  Serious: Yes (Death, Other)
  Sender: CHEPLAPHARM
  Company Number: US-CHEPLA-2025009545

PATIENT
  Age: 65 Year
  Sex: Male

DRUGS (9)
  1. HYDROXYUREA [Suspect]
     Active Substance: HYDROXYUREA
     Indication: Acute myeloid leukaemia
  2. TRETINOIN [Suspect]
     Active Substance: TRETINOIN
     Indication: Acute promyelocytic leukaemia
  3. RASBURICASE [Concomitant]
     Active Substance: RASBURICASE
     Indication: Tumour lysis syndrome
  4. RASBURICASE [Concomitant]
     Active Substance: RASBURICASE
     Indication: Renal failure
  5. CEFEPIME [Concomitant]
     Active Substance: CEFEPIME HYDROCHLORIDE
  6. VANCOMYCIN [Concomitant]
     Active Substance: VANCOMYCIN
  7. AZACITIDINE [Concomitant]
     Active Substance: AZACITIDINE
     Indication: Acute myeloid leukaemia
  8. VENCLEXTA [Concomitant]
     Active Substance: VENETOCLAX
     Indication: Acute myeloid leukaemia
  9. MEROPENEM [Concomitant]
     Active Substance: MEROPENEM

REACTIONS (3)
  - Shock [Fatal]
  - Ventricular hypokinesia [Unknown]
  - Acute respiratory failure [Unknown]
